FAERS Safety Report 5429693-7 (Version None)
Quarter: 2007Q3

REPORT INFORMATION
  Report Type: 
  Country: None (occurrence: None)
  Receive Date: 20070731
  Receipt Date: 20070409
  Transmission Date: 20080115
  Serious: No
  Sender: FDA-Public Use
  Company Number: US200704002473

PATIENT
  Age: 55 Year
  Sex: Female

DRUGS (3)
  1. BYETTA [Suspect]
     Dosage: 10 UG, SUBCUTANEOUS
     Route: 058
     Dates: start: 20060101
  2. EXENATIDE 10MCG PEN, DISPOSABLE DEVICE (EXENATIDE PEN (10MCG)) PEN,DIS [Concomitant]
  3. METFORMIN HCL [Concomitant]

REACTIONS (3)
  - DECREASED APPETITE [None]
  - FATIGUE [None]
  - PHARYNGOLARYNGEAL PAIN [None]
